FAERS Safety Report 7726510-7 (Version None)
Quarter: 2011Q3

REPORT INFORMATION
  Report Type: 
  Country: None (occurrence: None)
  Receive Date: 20110902
  Receipt Date: 20110823
  Transmission Date: 20111222
  Serious: Yes (Hospitalization, Other)
  Sender: FDA-Public Use
  Company Number: PHHY2011NZ65085

PATIENT
  Sex: Female

DRUGS (6)
  1. ACETAMINOPHEN [Concomitant]
     Indication: PAIN
     Dosage: 1 G QD
     Dates: start: 20090731
  2. AMANTADINE HCL [Concomitant]
     Indication: PARKINSON'S DISEASE
     Dosage: 10 MG MANE
     Route: 048
     Dates: start: 20090731
  3. CITALOPRAM [Concomitant]
     Indication: DEPRESSION
     Dosage: 10 MG
     Route: 048
     Dates: start: 20090731
  4. FOLIC ACID [Concomitant]
     Indication: SUPPLEMENTATION THERAPY
     Dosage: 5 MG MANE
     Route: 048
     Dates: start: 20090731
  5. DOCUSATE SODIUM W/SENNA [Concomitant]
     Indication: CONSTIPATION
     Dosage: 2 NOCTE
     Route: 048
     Dates: start: 20090731
  6. CLOZAPINE [Suspect]
     Indication: SCHIZOPHRENIA
     Dates: start: 20090822, end: 20110713

REACTIONS (3)
  - FALL [None]
  - SOMNOLENCE [None]
  - FEMORAL NECK FRACTURE [None]
